FAERS Safety Report 4348905-4 (Version None)
Quarter: 2004Q1

REPORT INFORMATION
  Report Type: 
  Country: None (occurrence: None)
  Receive Date: 20040325
  Receipt Date: 20031223
  Transmission Date: 20041129
  Serious: No
  Sender: FDA-Public Use
  Company Number: USA031152313

PATIENT
  Age: 76 Year
  Sex: Female
  Weight: 52 kg

DRUGS (5)
  1. FORTEO [Suspect]
     Dates: start: 20031011
  2. METHOTREXATE [Concomitant]
  3. XANAX [Concomitant]
  4. ULTRACET [Concomitant]
  5. CALTRATE (CALCIUM CARBONATE) [Concomitant]

REACTIONS (3)
  - ANOREXIA [None]
  - BACK PAIN [None]
  - NAUSEA [None]
